FAERS Safety Report 16763103 (Version 1)
Quarter: 2019Q3

REPORT INFORMATION
  Report Type: Report from Study
  Country: None (occurrence: US)
  Receive Date: 20190902
  Receipt Date: 20190902
  Transmission Date: 20191005
  Serious: Yes (Other)
  Sender: FDA-Public Use
  Company Number: US-BIOVITRUM-2019US2704

PATIENT
  Sex: Male

DRUGS (3)
  1. KINERET [Suspect]
     Active Substance: ANAKINRA
     Indication: ANKYLOSING SPONDYLITIS
     Route: 058
     Dates: start: 20190801
  2. NSAID [Suspect]
     Active Substance: UNSPECIFIED INGREDIENT
  3. METHOTREXATE. [Suspect]
     Active Substance: METHOTREXATE

REACTIONS (3)
  - Off label use [Not Recovered/Not Resolved]
  - Injection site bruising [Unknown]
  - Renal failure [Unknown]
